FAERS Safety Report 4419955-4 (Version None)
Quarter: 2004Q3

REPORT INFORMATION
  Report Type: 
  Country: None (occurrence: None)
  Receive Date: 20040809
  Receipt Date: 20040316
  Transmission Date: 20050211
  Serious: No
  Sender: FDA-Public Use
  Company Number: US-GLAXOSMITHKLINE-A0503010A

PATIENT
  Sex: Female

DRUGS (2)
  1. PAROXETINE HCL [Suspect]
     Route: 048
  2. PAROXETINE HCL [Suspect]
     Dosage: 10MG TWICE PER DAY
     Route: 048

REACTIONS (1)
  - RASH [None]
